FAERS Safety Report 11069786 (Version 1)
Quarter: 2015Q2

REPORT INFORMATION
  Report Type: Spontaneous
  Country: SE (occurrence: SE)
  Receive Date: 20150427
  Receipt Date: 20150427
  Transmission Date: 20150821
  Serious: Yes (Life-Threatening, Hospitalization)
  Sender: FDA-Public Use
  Company Number: SE-TEVA-556856ISR

PATIENT
  Age: 54 Year
  Sex: Male

DRUGS (6)
  1. JANUMET [Concomitant]
     Active Substance: METFORMIN HYDROCHLORIDE\SITAGLIPTIN PHOSPHATE
  2. SERTRALINE [Suspect]
     Active Substance: SERTRALINE HYDROCHLORIDE
  3. METOPROLOL [Suspect]
     Active Substance: METOPROLOL
  4. ENALAPRIL [Suspect]
     Active Substance: ENALAPRIL
  5. SIMVASTATIN. [Suspect]
     Active Substance: SIMVASTATIN
  6. TROMBYL 75 MG [Concomitant]

REACTIONS (1)
  - Toxicity to various agents [Recovered/Resolved]
